FAERS Safety Report 19442499 (Version 1)
Quarter: 2021Q2

REPORT INFORMATION
  Report Type: Other
  Country: US (occurrence: US)
  Receive Date: 20210621
  Receipt Date: 20210621
  Transmission Date: 20210717
  Serious: No
  Sender: FDA-Public Use
  Company Number: US-ACORDA-ACO_168608_2021

PATIENT
  Sex: Male

DRUGS (2)
  1. INBRIJA [Suspect]
     Active Substance: LEVODOPA
     Indication: ON AND OFF PHENOMENON
  2. INBRIJA [Suspect]
     Active Substance: LEVODOPA
     Indication: PARKINSON^S DISEASE
     Dosage: 2 DOSAGE FORM, PRN (DO NOT EXCEED 5 DOSES PER DAY)
     Dates: start: 20201126

REACTIONS (6)
  - Feeling abnormal [Unknown]
  - Visual field defect [Unknown]
  - Confusional state [Unknown]
  - Dyskinesia [Unknown]
  - Adverse event [Unknown]
  - Device issue [Unknown]
